FAERS Safety Report 11861573 (Version 1)
Quarter: 2015Q4

REPORT INFORMATION
  Report Type: Spontaneous
  Country: US (occurrence: US)
  Receive Date: 20151222
  Receipt Date: 20151222
  Transmission Date: 20160305
  Serious: No
  Sender: FDA-Public Use
  Company Number: US-GREER LABORATORIES, INC.-1045799

PATIENT
  Age: 48 Year
  Sex: Male

DRUGS (2)
  1. POLLEN [Suspect]
     Active Substance: BEE POLLEN
     Indication: MULTIPLE ALLERGIES
     Route: 058
     Dates: start: 20151123
  2. CAT HAIR, STANDARDIZED [Suspect]
     Active Substance: FELIS CATUS HAIR
     Route: 058
     Dates: start: 20151123

REACTIONS (2)
  - Erythema [Unknown]
  - Urticaria [Unknown]

NARRATIVE: CASE EVENT DATE: 20151123
